FAERS Safety Report 8831797 (Version 4)
Quarter: 2013Q1

REPORT INFORMATION
  Report Type: Report from Study
  Country: NZ (occurrence: NZ)
  Receive Date: 20121009
  Receipt Date: 20130307
  Transmission Date: 20140127
  Serious: No
  Sender: FDA-Public Use
  Company Number: PHHY2012NZ088883

PATIENT
  Sex: Female

DRUGS (3)
  1. CLOZARIL [Suspect]
     Indication: SCHIZOPHRENIA
     Dosage: UNK
     Dates: start: 20080708, end: 2012
  2. CLOZARIL [Suspect]
     Dosage: 25 MG
     Route: 048
  3. CLOZARIL [Suspect]
     Dosage: 100 MG, UNK
     Route: 048

REACTIONS (2)
  - Drug ineffective [Unknown]
  - Hallucination [Recovered/Resolved]
